FAERS Safety Report 9267141 (Version 2)
Quarter: 2013Q2

REPORT INFORMATION
  Report Type: Other
  Country: JP (occurrence: JP)
  Receive Date: 20130502
  Receipt Date: 20130625
  Transmission Date: 20140414
  Serious: Yes (Hospitalization)
  Sender: FDA-Public Use
  Company Number: JP-VERTEX PHARMACEUTICALS INC-2013-005597

PATIENT
  Age: 61 Year
  Sex: Female

DRUGS (19)
  1. TELAVIC [Suspect]
     Indication: CHRONIC HEPATITIS C
     Dosage: 1500 MG, QD
     Route: 048
     Dates: start: 20121017, end: 20121114
  2. TELAVIC [Suspect]
     Dosage: 1500 MG, QD
     Route: 048
     Dates: start: 20121127
  3. REBETOL [Suspect]
     Indication: CHRONIC HEPATITIS C
     Dosage: 400 MG, QD
     Route: 048
     Dates: start: 20121017, end: 20121031
  4. REBETOL [Suspect]
     Dosage: 200 MG, QD
     Route: 048
     Dates: start: 20121101, end: 20121114
  5. REBETOL [Suspect]
     Dosage: 200 MG, QD
     Route: 048
     Dates: start: 20121127
  6. PEGINTRON [Suspect]
     Indication: CHRONIC HEPATITIS C
     Dosage: 60 ?G, QW
     Route: 058
     Dates: start: 20121017, end: 20121030
  7. PEGINTRON [Suspect]
     Dosage: 70 ?G, QW
     Route: 058
     Dates: start: 20121031, end: 20121114
  8. PEGINTRON [Suspect]
     Dosage: 50 ?G, QW
     Route: 058
     Dates: start: 20121127
  9. ANAFRANIL [Concomitant]
     Route: 048
  10. SEPAZON [Concomitant]
     Route: 048
  11. SALIVEHT FUJISAWA [Concomitant]
     Route: 049
  12. URSO [Concomitant]
     Route: 048
  13. KAMOSTAAL [Concomitant]
     Route: 048
  14. BESASTAR [Concomitant]
     Route: 048
  15. PARIET [Concomitant]
     Route: 048
  16. FEBURIC [Concomitant]
     Dosage: 10 MG, QD
     Route: 048
     Dates: start: 20121019, end: 20121106
  17. FEBURIC [Concomitant]
     Dosage: 20 MG, QD
     Route: 048
     Dates: start: 20121107, end: 20121114
  18. ALLELOCK [Concomitant]
     Dosage: 10 MG, QD
     Route: 048
     Dates: start: 20121023
  19. NERISONA [Concomitant]
     Dosage: UNK
     Route: 062
     Dates: start: 20121023

REACTIONS (3)
  - Dysphonia [Recovered/Resolved]
  - Cough [Recovered/Resolved]
  - Oropharyngeal pain [Recovered/Resolved]
